FAERS Safety Report 9756160 (Version 1)
Quarter: 2013Q4

REPORT INFORMATION
  Report Type: Spontaneous
  Country: US (occurrence: US)
  Receive Date: 20131213
  Receipt Date: 20131213
  Transmission Date: 20140711
  Serious: No
  Sender: FDA-Public Use
  Company Number: US-GLAXOSMITHKLINE-A1033932A

PATIENT
  Age: 28 Year
  Sex: Female

DRUGS (2)
  1. NICODERM CQ CLEAR 21MG [Suspect]
     Indication: EX-TOBACCO USER
     Dates: start: 20130715, end: 20130717
  2. NICOTINE PATCH UNKNOWN BRAND [Suspect]
     Indication: EX-TOBACCO USER
     Dates: start: 20130717

REACTIONS (6)
  - Overdose [Not Recovered/Not Resolved]
  - Insomnia [Recovered/Resolved]
  - Drug administration error [Unknown]
  - Visual impairment [Not Recovered/Not Resolved]
  - Astigmatism [Not Recovered/Not Resolved]
  - Condition aggravated [Not Recovered/Not Resolved]
